FAERS Safety Report 13090267 (Version 1)
Quarter: 2017Q1

REPORT INFORMATION
  Report Type: Spontaneous
  Country: US (occurrence: US)
  Receive Date: 20170105
  Receipt Date: 20170105
  Transmission Date: 20170428
  Serious: Yes (Hospitalization)
  Sender: FDA-Public Use
  Company Number: US-ENDO PHARMACEUTICALS INC.-2015-003607

PATIENT
  Age: 60 Year
  Sex: Male
  Weight: 87.62 kg

DRUGS (9)
  1. PREDNISONE. [Concomitant]
     Active Substance: PREDNISONE
     Indication: TRANSPLANT
     Route: 065
     Dates: start: 2002
  2. LIPITOR [Concomitant]
     Active Substance: ATORVASTATIN CALCIUM
     Indication: TRANSPLANT
     Route: 065
     Dates: start: 2002
  3. FORTESTA [Suspect]
     Active Substance: TESTOSTERONE
     Indication: ANDROGEN REPLACEMENT THERAPY
     Route: 061
     Dates: start: 201312, end: 201504
  4. DIPHENHYDRAMINE. [Concomitant]
     Active Substance: DIPHENHYDRAMINE
     Indication: HYPERSENSITIVITY
     Route: 065
     Dates: start: 2002
  5. ANDROGEL [Suspect]
     Active Substance: TESTOSTERONE
     Indication: ANDROGEN REPLACEMENT THERAPY
     Route: 065
     Dates: start: 201208, end: 201312
  6. PROGRAF [Concomitant]
     Active Substance: TACROLIMUS\TACROLIMUS ANHYDROUS
     Indication: TRANSPLANT
     Route: 065
     Dates: start: 2002
  7. FLONASE [Concomitant]
     Active Substance: FLUTICASONE PROPIONATE
     Indication: HYPERSENSITIVITY
     Route: 065
     Dates: start: 2002
  8. IBANDRONATE [Concomitant]
     Active Substance: IBANDRONATE SODIUM
     Indication: OSTEOPOROSIS
     Route: 065
     Dates: start: 2002
  9. CYCLOBENZAPRINE [Concomitant]
     Active Substance: CYCLOBENZAPRINE
     Indication: BACK PAIN
     Route: 065
     Dates: start: 1998

REACTIONS (2)
  - Deep vein thrombosis [Unknown]
  - Pulmonary embolism [Unknown]

NARRATIVE: CASE EVENT DATE: 20121226
